FAERS Safety Report 15599147 (Version 1)
Quarter: 2018Q4

REPORT INFORMATION
  Report Type: Spontaneous
  Country: US (occurrence: US)
  Receive Date: 20181108
  Receipt Date: 20181108
  Transmission Date: 20190205
  Serious: No
  Sender: FDA-Public Use
  Company Number: US-PFIZER INC-2018428560

PATIENT
  Age: 56 Year
  Sex: Female
  Weight: 97.98 kg

DRUGS (2)
  1. LYRICA [Suspect]
     Active Substance: PREGABALIN
     Indication: NEUROPATHY PERIPHERAL
     Dosage: 150 MG, 2X/DAY (TWO 75 MG IN THE MORNING AND TWO 75 MG AT NIGHT)
     Route: 048
     Dates: start: 20180926
  2. LYRICA [Suspect]
     Active Substance: PREGABALIN
     Indication: FIBROMYALGIA
     Dosage: 75 MG, 2X/DAY
     Route: 048
     Dates: start: 20180920, end: 20180926

REACTIONS (2)
  - Anxiety [Unknown]
  - Intentional product misuse [Unknown]
